FAERS Safety Report 11635021 (Version 2)
Quarter: 2019Q3

REPORT INFORMATION
  Report Type: Spontaneous
  Country: US (occurrence: US)
  Receive Date: 20151015
  Receipt Date: 20190717
  Transmission Date: 20191004
  Serious: No
  Sender: FDA-Public Use
  Company Number: US-SA-2015SA022587

PATIENT
  Age: 11 Year
  Sex: Male
  Weight: 31.25 kg

DRUGS (3)
  1. LUMIZYME [Suspect]
     Active Substance: ALGLUCOSIDASE ALFA
     Dosage: 30.4 MG/KG,QW
     Route: 041
     Dates: start: 20150210
  2. LUMIZYME [Suspect]
     Active Substance: ALGLUCOSIDASE ALFA
     Indication: GLYCOGEN STORAGE DISEASE TYPE II
     Dosage: 1800 MG
     Route: 041
     Dates: start: 201410
  3. LUMIZYME [Suspect]
     Active Substance: ALGLUCOSIDASE ALFA
     Dosage: 30.4 MG/KG,QW
     Route: 041
     Dates: start: 20150210, end: 20150210

REACTIONS (4)
  - Heart rate increased [Recovered/Resolved]
  - Gastroenteritis viral [Unknown]
  - Pyrexia [Unknown]
  - Product dose omission [Unknown]

NARRATIVE: CASE EVENT DATE: 20150210
